FAERS Safety Report 4577836-X (Version None)
Quarter: 2005Q1

REPORT INFORMATION
  Report Type: 
  Country: None (occurrence: None)
  Receive Date: 20050209
  Receipt Date: 20050127
  Transmission Date: 20050727
  Serious: Yes (Life-Threatening, Disabling, Other)
  Sender: FDA-Public Use
  Company Number: 2005-UK-00158UK

PATIENT
  Age: 82 Year
  Sex: Female

DRUGS (8)
  1. PRAMIPEXOLE (UK) (PRAMIPEXOLE DIHYDROCHLORIDE) [Suspect]
     Indication: PARKINSON'S DISEASE
     Dosage: 88 MCG AT NIGHT
     Route: 048
     Dates: start: 20041231, end: 20050107
  2. PRAMIPEXOLE (UK) (PRAMIPEXOLE DIHYDROCHLORIDE) [Suspect]
     Indication: RESTLESS LEGS SYNDROME
     Dosage: 88 MCG AT NIGHT
     Route: 048
     Dates: start: 20041231, end: 20050107
  3. LAMOTRIGINE (LAMOTRIGINE) (LAMOTRIGINE) [Suspect]
     Indication: EPILEPSY
     Dosage: 200MG MANE, 100MG NOCTE (MORNING AND AT NIGHT
     Dates: start: 20031010
  4. PERINDOPRIL (PERINDOPRIL) [Concomitant]
  5. NICORANDIL (NICORANDIL) [Concomitant]
  6. SINEMET [Concomitant]
  7. CLOPIDOGREL BISULFATE [Concomitant]
  8. LANSOPRAZOLE [Concomitant]

REACTIONS (3)
  - CONDITION AGGRAVATED [None]
  - CONVULSION [None]
  - DRUG INTERACTION [None]
